FAERS Safety Report 4799913-0 (Version None)
Quarter: 2005Q4

REPORT INFORMATION
  Report Type: 
  Country: None (occurrence: None)
  Receive Date: 20051017
  Receipt Date: 20050915
  Transmission Date: 20060501
  Serious: Yes (Hospitalization)
  Sender: FDA-Public Use
  Company Number: 200512113DE

PATIENT
  Age: 71 Year
  Sex: Female
  Weight: 60 kg

DRUGS (10)
  1. ARAVA [Suspect]
     Indication: PROPHYLAXIS
     Route: 048
     Dates: start: 20030901, end: 20031101
  2. ARAVA [Suspect]
     Indication: RHEUMATOID ARTHRITIS
     Route: 048
     Dates: start: 20030901, end: 20031101
  3. VIOXX [Suspect]
     Indication: RHEUMATOID ARTHRITIS
     Route: 048
     Dates: start: 20021001, end: 20031101
  4. ASPIRIN [Suspect]
     Indication: CORONARY ARTERY DISEASE
     Route: 048
  5. NOVALGIN [Concomitant]
  6. OMEP [Concomitant]
  7. FUROSEMIDE [Concomitant]
     Dosage: DOSE: 1-0.5-0
  8. THYREOCOMB [Concomitant]
     Dosage: DOSE: 1-0-0
  9. ASPIRIN [Concomitant]
     Dosage: DOSE: 0-100-0
  10. METHOTREXATE [Concomitant]

REACTIONS (9)
  - ABDOMINAL DISCOMFORT [None]
  - ALANINE AMINOTRANSFERASE INCREASED [None]
  - ANOREXIA [None]
  - ASPARTATE AMINOTRANSFERASE INCREASED [None]
  - BLOOD ALKALINE PHOSPHATASE INCREASED [None]
  - BLOOD LACTATE DEHYDROGENASE INCREASED [None]
  - DYSGEUSIA [None]
  - GAMMA-GLUTAMYLTRANSFERASE INCREASED [None]
  - TRANSAMINASES INCREASED [None]
